FAERS Safety Report 6589392-5 (Version None)
Quarter: 2010Q1

REPORT INFORMATION
  Report Type: 
  Country: None (occurrence: None)
  Receive Date: 20100212
  Receipt Date: 20100125
  Transmission Date: 20100710
  Serious: Yes (Life-Threatening, Hospitalization, Other)
  Sender: FDA-Public Use
  Company Number: FR-2010-0128

PATIENT
  Age: 6 Year
  Sex: Male
  Weight: 24 kg

DRUGS (5)
  1. NAVELBINE [Suspect]
     Indication: HODGKIN'S DISEASE
     Dosage: 135 MG QD IV
     Route: 042
     Dates: start: 20100114, end: 20100114
  2. NAVELBINE [Suspect]
     Dosage: 135 MG QD IV
     Route: 042
     Dates: start: 20100118, end: 20100118
  3. IFOSFAMIDE [Concomitant]
  4. MITOGUAZONE [Concomitant]
  5. ETOPOSIDE [Concomitant]

REACTIONS (17)
  - APLASIA [None]
  - CONVULSION [None]
  - DEPRESSED LEVEL OF CONSCIOUSNESS [None]
  - DISORIENTATION [None]
  - DRUG ADMINISTRATION ERROR [None]
  - DRUG DISPENSING ERROR [None]
  - FEBRILE BONE MARROW APLASIA [None]
  - FLATULENCE [None]
  - HAEMOGLOBIN DECREASED [None]
  - ILEUS [None]
  - INAPPROPRIATE ANTIDIURETIC HORMONE SECRETION [None]
  - INCORRECT DOSE ADMINISTERED [None]
  - MUCOSAL INFLAMMATION [None]
  - NERVOUS SYSTEM DISORDER [None]
  - OVERDOSE [None]
  - PLATELET COUNT DECREASED [None]
  - WHITE BLOOD CELL COUNT INCREASED [None]
